FAERS Safety Report 16835816 (Version 1)
Quarter: 2019Q3

REPORT INFORMATION
  Report Type: Spontaneous
  Country: US (occurrence: US)
  Receive Date: 20190920
  Receipt Date: 20190920
  Transmission Date: 20191005
  Serious: No
  Sender: FDA-Public Use
  Company Number: US-GLAXOSMITHKLINE-US2019169725

PATIENT
  Age: 52 Year
  Sex: Female

DRUGS (1)
  1. NICORETTE WHITE ICE MINT [Suspect]
     Active Substance: NICOTINE
     Indication: PRODUCT USED FOR UNKNOWN INDICATION
     Dosage: 4 MG, BID
     Dates: start: 201909

REACTIONS (6)
  - Eructation [Unknown]
  - Pain [Unknown]
  - Panic reaction [Unknown]
  - Product use issue [Unknown]
  - Dyspnoea [Unknown]
  - Pharyngeal swelling [Unknown]
